FAERS Safety Report 4402327-6 (Version None)
Quarter: 2004Q3

REPORT INFORMATION
  Report Type: 
  Country: None (occurrence: None)
  Receive Date: 20040714
  Receipt Date: 20040628
  Transmission Date: 20050211
  Serious: Yes (Other)
  Sender: FDA-Public Use
  Company Number: A03200402137

PATIENT

DRUGS (1)
  1. PLAVIX [Suspect]
     Indication: CORONARY ARTERY SURGERY
     Dosage: ORAL
     Route: 048

REACTIONS (2)
  - EOSINOPHILIA [None]
  - NEPHRITIS [None]
